FAERS Safety Report 8812067 (Version 4)
Quarter: 2015Q2

REPORT INFORMATION
  Report Type: Report from Study
  Country: US (occurrence: US)
  Receive Date: 20120927
  Receipt Date: 20150403
  Transmission Date: 20150821
  Serious: Yes (Death, Life-Threatening)
  Sender: FDA-Public Use
  Company Number: US-ROCHE-1135986

PATIENT
  Age: 74 Year
  Sex: Male

DRUGS (14)
  1. TAXOL [Concomitant]
     Active Substance: PACLITAXEL
     Route: 065
  2. BENADRYL [Concomitant]
     Active Substance: DIPHENHYDRAMINE HYDROCHLORIDE
     Route: 042
  3. CARBOPLATIN. [Suspect]
     Active Substance: CARBOPLATIN
     Indication: NON-SMALL CELL LUNG CANCER
     Dosage: 6 AUC
     Route: 042
     Dates: start: 20091119
  4. CYANOCOBALAMIN. [Concomitant]
     Active Substance: CYANOCOBALAMIN
     Route: 065
     Dates: start: 20091105
  5. PEPCID [Concomitant]
     Active Substance: FAMOTIDINE
     Route: 065
  6. KYTRIL [Concomitant]
     Active Substance: GRANISETRON HYDROCHLORIDE
     Route: 065
  7. AVASTIN [Suspect]
     Active Substance: BEVACIZUMAB
     Indication: NON-SMALL CELL LUNG CANCER
     Dosage: MOST RECENT DOSE PRIOR TO EVENT ON 18/DEC/2009
     Route: 042
  8. AVASTIN [Suspect]
     Active Substance: BEVACIZUMAB
     Indication: MALIGNANT MELANOMA
     Route: 042
  9. PEMETREXED [Suspect]
     Active Substance: PEMETREXED
     Indication: NON-SMALL CELL LUNG CANCER
     Route: 042
     Dates: start: 20091119
  10. AVASTIN [Suspect]
     Active Substance: BEVACIZUMAB
     Indication: METASTATIC MALIGNANT MELANOMA
     Route: 042
  11. LISINOPRIL. [Concomitant]
     Active Substance: LISINOPRIL
     Route: 065
     Dates: start: 20091218
  12. TYLENOL [Concomitant]
     Active Substance: ACETAMINOPHEN
     Route: 065
  13. DECADRON [Concomitant]
     Active Substance: DEXAMETHASONE
     Route: 042
  14. FOLIC ACID. [Concomitant]
     Active Substance: FOLIC ACID
     Route: 065
     Dates: start: 20091105

REACTIONS (7)
  - Respiratory failure [Fatal]
  - Myocardial infarction [Fatal]
  - Off label use [Unknown]
  - Acute kidney injury [Fatal]
  - Sepsis [Fatal]
  - Cardiac failure congestive [Fatal]
  - Neutropenia [Fatal]

NARRATIVE: CASE EVENT DATE: 20091228
